FAERS Safety Report 10142809 (Version 1)
Quarter: 2014Q2

REPORT INFORMATION
  Report Type: Spontaneous
  Country: US (occurrence: None)
  Receive Date: 20140429
  Receipt Date: 20140429
  Transmission Date: 20141212
  Serious: Yes (Other)
  Sender: FDA-Public Use
  Company Number: None

PATIENT
  Age: 77 Year
  Sex: Female

DRUGS (8)
  1. MULTAQ [Suspect]
     Indication: ATRIAL FIBRILLATION
     Route: 048
     Dates: start: 20130530, end: 20140201
  2. WARFARIN [Concomitant]
  3. CRESTOR [Concomitant]
  4. LOW DOSE ASPIRIN [Concomitant]
  5. MULTIVITAMIN [Concomitant]
  6. CALCIUM [Concomitant]
  7. VITAMIN D [Concomitant]
  8. VEGETABLE LAXATIVE [Concomitant]

REACTIONS (14)
  - Nausea [None]
  - Fatigue [None]
  - Dry skin [None]
  - Skin disorder [None]
  - Anxiety [None]
  - Abnormal dreams [None]
  - Vertigo [None]
  - Dizziness [None]
  - Balance disorder [None]
  - Cough [None]
  - Yellow nail syndrome [None]
  - Headache [None]
  - Alopecia [None]
  - Gastric disorder [None]
